FAERS Safety Report 25447845 (Version 1)
Quarter: 2025Q2

REPORT INFORMATION
  Report Type: Report from Study
  Country: MX (occurrence: MX)
  Receive Date: 20250617
  Receipt Date: 20250617
  Transmission Date: 20250716
  Serious: Yes (Other)
  Sender: ELI LILLY AND COMPANY
  Company Number: MX-Merck Healthcare KGaA-2025026510

PATIENT
  Age: 57 Year
  Sex: Male

DRUGS (2)
  1. CETUXIMAB [Suspect]
     Active Substance: CETUXIMAB
     Indication: Head and neck cancer
     Dosage: 500 MG, WEEKLY (1/W)
     Route: 042
     Dates: start: 20250521
  2. CETUXIMAB [Suspect]
     Active Substance: CETUXIMAB
     Dosage: 500 MG, WEEKLY (1/W)
     Route: 042
     Dates: start: 20250528

REACTIONS (3)
  - Dry throat [Recovering/Resolving]
  - Acne [Recovering/Resolving]
  - Pruritus [Recovering/Resolving]

NARRATIVE: CASE EVENT DATE: 20250521
